FAERS Safety Report 25961500 (Version 1)
Quarter: 2025Q4

REPORT INFORMATION
  Report Type: Spontaneous
  Country: US (occurrence: US)
  Receive Date: 20251027
  Receipt Date: 20251027
  Transmission Date: 20260118
  Serious: Yes (Hospitalization, Other)
  Sender: OXFORD PHARMACEUTICALS, LLC
  Company Number: US-Oxford Pharmaceuticals, LLC-2187339

PATIENT
  Age: 62 Year
  Sex: Male

DRUGS (5)
  1. LORAZEPAM [Suspect]
     Active Substance: LORAZEPAM
     Indication: Claustrophobia
  2. METHOCARBAMOL [Suspect]
     Active Substance: METHOCARBAMOL
  3. OLANZAPINE [Concomitant]
     Active Substance: OLANZAPINE
  4. OXYCODONE [Suspect]
     Active Substance: OXYCODONE
  5. HYDROMORPHONE [Suspect]
     Active Substance: HYDROMORPHONE

REACTIONS (4)
  - Delirium [Recovered/Resolved]
  - Intentional self-injury [Unknown]
  - Eye excision [Unknown]
  - Acute psychosis [Recovered/Resolved]
